FAERS Safety Report 5357008-1 (Version None)
Quarter: 2007Q2

REPORT INFORMATION
  Report Type: 
  Country: None (occurrence: None)
  Receive Date: 20070612
  Receipt Date: 20070612
  Transmission Date: 20071010
  Serious: No
  Sender: FDA-Public Use
  Company Number: None

PATIENT
  Age: 65 Year
  Sex: Female
  Weight: 58.0604 kg

DRUGS (1)
  1. GENERIC ESTROGEN PATCH [Suspect]
     Indication: HORMONE REPLACEMENT THERAPY
     Dosage: 0.0375MG/24HR

REACTIONS (2)
  - DIZZINESS [None]
  - SYNCOPE [None]
